FAERS Safety Report 18563633 (Version 2)
Quarter: 2021Q1

REPORT INFORMATION
  Report Type: Spontaneous
  Country: US (occurrence: US)
  Receive Date: 20201201
  Receipt Date: 20210316
  Transmission Date: 20210419
  Serious: Yes (Hospitalization, Other)
  Sender: FDA-Public Use
  Company Number: US-CIPLA LTD.-2020US08939

PATIENT

DRUGS (8)
  1. QUETIAPINE. [Concomitant]
     Active Substance: QUETIAPINE
     Indication: AFFECTIVE DISORDER
     Dosage: 50 MILLIGRAM, QD EVERY NIGHT AT BED TIME
     Route: 065
  2. DULOXETINE. [Concomitant]
     Active Substance: DULOXETINE
     Indication: DEPRESSION
     Dosage: 60 MILLIGRAM, QD
     Route: 065
  3. DULOXETINE. [Concomitant]
     Active Substance: DULOXETINE
     Dosage: 30 MILLIGRAM, QD
     Route: 065
  4. DEXAMETHASONE. [Suspect]
     Active Substance: DEXAMETHASONE
     Dosage: 10 MILLIGRAM, QID
     Route: 042
  5. DEXAMETHASONE. [Suspect]
     Active Substance: DEXAMETHASONE
     Indication: BRAIN OEDEMA
     Dosage: 4 MILLIGRAM, QID
     Route: 042
  6. BUSPIRONE [Concomitant]
     Active Substance: BUSPIRONE HYDROCHLORIDE
     Indication: PRODUCT USED FOR UNKNOWN INDICATION
     Dosage: 10 MILLIGRAM, QD
     Route: 065
  7. LEVETIRACETAM. [Suspect]
     Active Substance: LEVETIRACETAM
     Indication: SEIZURE PROPHYLAXIS
     Dosage: 500 MILLIGRAM, BID
     Route: 065
  8. CODEINE [Suspect]
     Active Substance: CODEINE
     Indication: POSTOPERATIVE ANALGESIA
     Dosage: 30 MILLIGRAM, QID AS NEEDED
     Route: 065

REACTIONS (12)
  - Impulsive behaviour [Recovering/Resolving]
  - Mental status changes [Recovering/Resolving]
  - Patient uncooperative [Recovering/Resolving]
  - Irritability [Recovering/Resolving]
  - Delusion [Recovering/Resolving]
  - Speech disorder [Unknown]
  - Neuropsychiatric symptoms [Recovering/Resolving]
  - Depression [Recovering/Resolving]
  - Personality change [Recovering/Resolving]
  - Agitation [Recovering/Resolving]
  - Mood altered [Recovering/Resolving]
  - Anger [Recovering/Resolving]
